FAERS Safety Report 6300382-X (Version None)
Quarter: 2009Q3

REPORT INFORMATION
  Report Type: 
  Country: None (occurrence: None)
  Receive Date: 20090806
  Receipt Date: 20080804
  Transmission Date: 20100115
  Serious: No
  Sender: FDA-Public Use
  Company Number: US-ABBOTT-08P-163-0469081-00

PATIENT
  Sex: Male
  Weight: 99.88 kg

DRUGS (9)
  1. DEPAKOTE ER [Suspect]
     Indication: BIPOLAR DISORDER
     Route: 048
  2. SERTRALINE [Concomitant]
     Indication: DEPRESSION
     Route: 048
  3. BUPROPION HYDROCHLORIDE [Concomitant]
     Indication: DEPRESSION
     Route: 048
  4. PRAMIPEXOLE DIHYDROCHLORIDE [Concomitant]
     Indication: TREMOR
     Route: 048
  5. CITAMEL [Concomitant]
     Indication: DRUG USE FOR UNKNOWN INDICATION
     Route: 048
  6. L-CARNITINE [Concomitant]
     Indication: CARNITINE DECREASED
     Route: 048
  7. FISH OIL [Concomitant]
     Indication: VITAMIN SUPPLEMENTATION
     Route: 048
  8. FISH OIL [Concomitant]
     Route: 048
  9. ERGOCALCIFEROL [Concomitant]
     Indication: VITAMIN SUPPLEMENTATION
     Route: 048

REACTIONS (11)
  - ABDOMINAL DISTENSION [None]
  - ALOPECIA [None]
  - CARNITINE DECREASED [None]
  - DUPUYTREN'S CONTRACTURE [None]
  - FATIGUE [None]
  - GYNAECOMASTIA [None]
  - MUSCLE ATROPHY [None]
  - MUSCULAR WEAKNESS [None]
  - NEUROPATHY PERIPHERAL [None]
  - TREMOR [None]
  - WEIGHT INCREASED [None]
